FAERS Safety Report 20986658 (Version 2)
Quarter: 2022Q3

REPORT INFORMATION
  Report Type: Spontaneous
  Country: US (occurrence: None)
  Receive Date: 20220621
  Receipt Date: 20220728
  Transmission Date: 20221026
  Serious: Yes (Life-Threatening)
  Sender: FDA-Public Use
  Company Number: 2022A226626

PATIENT
  Age: 36 Year
  Sex: Female

DRUGS (7)
  1. EVUSHELD [Suspect]
     Active Substance: CILGAVIMAB\TIXAGEVIMAB
     Route: 030
     Dates: start: 20220613
  2. TIXAGEVIMAB [Suspect]
     Active Substance: TIXAGEVIMAB
     Dosage: 150 MG /1.5 ML
     Route: 030
     Dates: start: 20220613
  3. CILGAVIMAB [Suspect]
     Active Substance: CILGAVIMAB
     Dosage: 150 MG /1.5 ML
     Route: 030
     Dates: start: 20220613
  4. EPIPEN [Concomitant]
     Active Substance: EPINEPHRINE
  5. BENADRYL [Concomitant]
     Active Substance: DIPHENHYDRAMINE HYDROCHLORIDE
  6. EPINEPHRINE [Concomitant]
     Active Substance: EPINEPHRINE
  7. PREDNISONE [Concomitant]
     Active Substance: PREDNISONE

REACTIONS (2)
  - Respiratory distress [Unknown]
  - Cough [Unknown]

NARRATIVE: CASE EVENT DATE: 20220613
